FAERS Safety Report 7448010-4 (Version None)
Quarter: 2011Q2

REPORT INFORMATION
  Report Type: 
  Country: None (occurrence: None)
  Receive Date: 20110429
  Receipt Date: 20100323
  Transmission Date: 20111010
  Serious: No
  Sender: FDA-Public Use
  Company Number: US-ASTRAZENECA-2010SE12969

PATIENT
  Age: 15177 Day
  Sex: Female
  Weight: 80.7 kg

DRUGS (2)
  1. NEXIUM [Suspect]
     Route: 048
     Dates: start: 20080413, end: 20100110
  2. PRILOSEC OTC [Suspect]
     Route: 048
     Dates: start: 20100120

REACTIONS (4)
  - DRUG INEFFECTIVE [None]
  - DYSPEPSIA [None]
  - DRUG DOSE OMISSION [None]
  - AEROPHAGIA [None]
